FAERS Safety Report 13381019 (Version 1)
Quarter: 2017Q1

REPORT INFORMATION
  Report Type: Spontaneous
  Country: US (occurrence: US)
  Receive Date: 20170329
  Receipt Date: 20170329
  Transmission Date: 20170429
  Serious: Yes (Other)
  Sender: FDA-Public Use
  Company Number: US-AMGEN-USASP2017044247

PATIENT
  Sex: Female

DRUGS (4)
  1. ENBREL [Suspect]
     Active Substance: ETANERCEPT
     Dosage: 50 MG, QWK
     Route: 065
     Dates: start: 201702
  2. ENBREL [Suspect]
     Active Substance: ETANERCEPT
     Indication: RHEUMATOID ARTHRITIS
     Dosage: UNK
     Route: 065
  3. ENBREL [Suspect]
     Active Substance: ETANERCEPT
     Dosage: UNK
     Route: 065
     Dates: end: 2015
  4. METFORMIN [Concomitant]
     Active Substance: METFORMIN HYDROCHLORIDE
     Indication: DIABETES MELLITUS
     Dosage: UNK
     Route: 065

REACTIONS (10)
  - Stress [Not Recovered/Not Resolved]
  - Crying [Unknown]
  - Wrong technique in product usage process [Unknown]
  - Fear of injection [Unknown]
  - Unevaluable event [Unknown]
  - Pain [Not Recovered/Not Resolved]
  - Myocardial infarction [Unknown]
  - Drug effect decreased [Unknown]
  - Panic attack [Not Recovered/Not Resolved]
  - Injection site haemorrhage [Unknown]

NARRATIVE: CASE EVENT DATE: 2016
